FAERS Safety Report 9209695 (Version 1)
Quarter: 2013Q2

REPORT INFORMATION
  Report Type: Spontaneous
  Country: US (occurrence: US)
  Receive Date: 20130404
  Receipt Date: 20130404
  Transmission Date: 20140414
  Serious: No
  Sender: FDA-Public Use
  Company Number: US-BAYER-2013-042617

PATIENT
  Age: 17 Year
  Sex: Male

DRUGS (2)
  1. ALEVE TABLET [Suspect]
     Route: 048
  2. VYVANSE [Concomitant]

REACTIONS (2)
  - Overdose [None]
  - Vomiting [None]
